FAERS Safety Report 13571888 (Version 1)
Quarter: 2017Q2

REPORT INFORMATION
  Report Type: Spontaneous
  Country: US (occurrence: US)
  Receive Date: 20170523
  Receipt Date: 20170523
  Transmission Date: 20170830
  Serious: No
  Sender: FDA-Public Use
  Company Number: US-DRREDDYS-USA/USA/16/0083597

PATIENT
  Sex: Female

DRUGS (2)
  1. ZENATANE [Suspect]
     Active Substance: ISOTRETINOIN
     Indication: ACNE
     Route: 048
     Dates: start: 20160909
  2. ZENATANE [Suspect]
     Active Substance: ISOTRETINOIN
     Route: 048
     Dates: end: 20160920

REACTIONS (5)
  - Nasal dryness [Recovering/Resolving]
  - Unevaluable event [Recovering/Resolving]
  - Lethargy [Recovering/Resolving]
  - Lip dry [Recovering/Resolving]
  - Fatigue [Unknown]
